FAERS Safety Report 13124736 (Version 1)
Quarter: 2017Q1

REPORT INFORMATION
  Report Type: Other
  Country: GB (occurrence: GB)
  Receive Date: 20170118
  Receipt Date: 20170118
  Transmission Date: 20170428
  Serious: Yes (Hospitalization, Other)
  Sender: FDA-Public Use
  Company Number: GB-APOTEX-2017AP005736

PATIENT
  Age: 1 Hour
  Sex: Male

DRUGS (1)
  1. PAROXETINE. [Suspect]
     Active Substance: PAROXETINE
     Indication: PRODUCT USED FOR UNKNOWN INDICATION
     Dosage: 30 MG, UNK
     Route: 064

REACTIONS (4)
  - Hypoglycaemia neonatal [Recovered/Resolved]
  - Neonatal respiratory distress syndrome [Recovered/Resolved]
  - Convulsion neonatal [Recovered/Resolved]
  - Body temperature fluctuation [Recovered/Resolved]
